FAERS Safety Report 5469499-6 (Version None)
Quarter: 2007Q3

REPORT INFORMATION
  Report Type: 
  Country: None (occurrence: None)
  Receive Date: 20070927
  Receipt Date: 20070924
  Transmission Date: 20080115
  Serious: Yes (Hospitalization)
  Sender: FDA-Public Use
  Company Number: A0683833A

PATIENT
  Age: 56 Year
  Sex: Female

DRUGS (14)
  1. ARIXTRA [Suspect]
     Indication: DEEP VEIN THROMBOSIS
     Dosage: 5MG PER DAY
     Route: 058
     Dates: start: 20070917, end: 20070924
  2. COUMADIN [Concomitant]
  3. ANCEF [Concomitant]
  4. PEPTO BISMOL [Concomitant]
  5. BUTORPHANOL TARTRATE [Concomitant]
  6. HEPARIN [Concomitant]
  7. LORTAB [Concomitant]
  8. CONTRAST MEDIA [Concomitant]
  9. KETOROLAC [Concomitant]
  10. LIDOCAINE [Concomitant]
  11. LOPERAMIDE HCL [Concomitant]
  12. LORAZEPAM [Concomitant]
  13. DEMEROL [Concomitant]
  14. MIDAZOLAM HCL [Concomitant]

REACTIONS (1)
  - ACTIVATED PARTIAL THROMBOPLASTIN TIME PROLONGED [None]
